FAERS Safety Report 8064571-9 (Version None)
Quarter: 2012Q1

REPORT INFORMATION
  Report Type: 
  Country: None (occurrence: None)
  Receive Date: 20120123
  Receipt Date: 20110928
  Transmission Date: 20120608
  Serious: Yes (Other)
  Sender: FDA-Public Use
  Company Number: US-ROCHE-1004220

PATIENT
  Age: 30 Year
  Sex: Female

DRUGS (1)
  1. AVASTIN [Suspect]
     Indication: CHOROIDAL NEOVASCULARISATION
     Route: 050

REACTIONS (3)
  - TRANSMISSION OF AN INFECTIOUS AGENT VIA A MEDICINAL PRODUCT [None]
  - BLINDNESS [None]
  - ENDOPHTHALMITIS [None]
